FAERS Safety Report 8051012-0 (Version None)
Quarter: 2012Q1

REPORT INFORMATION
  Report Type: 
  Country: None (occurrence: None)
  Receive Date: 20120117
  Receipt Date: 20120111
  Transmission Date: 20120608
  Serious: Yes (Death)
  Sender: FDA-Public Use
  Company Number: PHEH2012US001115

PATIENT
  Sex: Male

DRUGS (8)
  1. DOXAZOSIN MESYLATE [Concomitant]
     Dosage: 1 MG, UNK
  2. BIOTENE [Concomitant]
     Dosage: DRY KIT MOUTH
  3. ZANTAC [Concomitant]
     Dosage: 25 MG, UNK
  4. FOLIC ACID [Concomitant]
     Dosage: 1 MG, UNK
  5. AFINITOR [Suspect]
     Dosage: 5 MG EVERY DAY
     Route: 048
  6. IMODIUM A-D [Concomitant]
     Dosage: 2 MG, UNK
  7. NORVASC [Concomitant]
     Dosage: 5 MG, UNK
  8. PRAVASTATIN [Concomitant]
     Dosage: 10 MG, UNK

REACTIONS (1)
  - DEATH [None]
